FAERS Safety Report 13206349 (Version 1)
Quarter: 2017Q1

REPORT INFORMATION
  Report Type: Spontaneous
  Country: US (occurrence: US)
  Receive Date: 20170209
  Receipt Date: 20170209
  Transmission Date: 20170428
  Serious: No
  Sender: FDA-Public Use
  Company Number: US-SA-2016SA197435

PATIENT
  Age: 73 Year
  Sex: Female

DRUGS (13)
  1. METHYLPRED [Concomitant]
     Active Substance: METHYLPREDNISOLONE
  2. LANTUS [Concomitant]
     Active Substance: INSULIN GLARGINE
  3. HYDROCHLOROTHIAZIDE/VALSARTAN [Concomitant]
  4. CARVEDILOL. [Concomitant]
     Active Substance: CARVEDILOL
  5. SOLOSTAR [Concomitant]
     Active Substance: DEVICE
  6. GLIMEPIRIDE. [Concomitant]
     Active Substance: GLIMEPIRIDE
  7. TOUJEO [Concomitant]
     Active Substance: INSULIN GLARGINE
  8. PRALUENT [Suspect]
     Active Substance: ALIROCUMAB
     Indication: TYPE V HYPERLIPIDAEMIA
     Route: 065
  9. LEVOFLOXACIN. [Concomitant]
     Active Substance: LEVOFLOXACIN
  10. LEVOTHYROXINE. [Concomitant]
     Active Substance: LEVOTHYROXINE
  11. ALIROCUMAB PREFILLED PEN [Concomitant]
     Active Substance: ALIROCUMAB
     Indication: TYPE V HYPERLIPIDAEMIA
  12. FLUTICASONE. [Concomitant]
     Active Substance: FLUTICASONE
  13. METFORMIN [Concomitant]
     Active Substance: METFORMIN HYDROCHLORIDE

REACTIONS (2)
  - Nausea [Unknown]
  - Infection [Unknown]
